FAERS Safety Report 16088425 (Version 1)
Quarter: 2019Q1

REPORT INFORMATION
  Report Type: Spontaneous
  Country: US (occurrence: US)
  Receive Date: 20190319
  Receipt Date: 20190319
  Transmission Date: 20190418
  Serious: Yes (Other)
  Sender: FDA-Public Use
  Company Number: US-GLAXOSMITHKLINE-US2019GSK044821

PATIENT
  Sex: Male

DRUGS (1)
  1. VENTOLIN [Suspect]
     Active Substance: ALBUTEROL SULFATE
     Indication: PRODUCT USED FOR UNKNOWN INDICATION
     Dosage: UNK
     Route: 055
     Dates: start: 2009

REACTIONS (6)
  - Sneezing [Unknown]
  - Malaise [Unknown]
  - Influenza [Unknown]
  - Cough [Unknown]
  - Respiratory tract infection [Unknown]
  - Sinus disorder [Unknown]

NARRATIVE: CASE EVENT DATE: 2019
